FAERS Safety Report 23450244 (Version 1)
Quarter: 2024Q1

REPORT INFORMATION
  Report Type: Report from Study
  Country: US (occurrence: US)
  Receive Date: 20240129
  Receipt Date: 20240129
  Transmission Date: 20240410
  Serious: Yes (Death, Other)
  Sender: FDA-Public Use
  Company Number: US-ACORDA-ACO_176269_2024

PATIENT
  Sex: Male

DRUGS (1)
  1. INBRIJA [Suspect]
     Active Substance: LEVODOPA
     Indication: Musculoskeletal stiffness
     Dosage: 42 MILLIGRAM, PRN
     Dates: start: 20230817

REACTIONS (2)
  - Death [Fatal]
  - Prescribed underdose [Unknown]
